FAERS Safety Report 13250201 (Version 2)
Quarter: 2017Q1

REPORT INFORMATION
  Report Type: Report from Study
  Country: IT (occurrence: IT)
  Receive Date: 20170218
  Receipt Date: 20170227
  Transmission Date: 20170428
  Serious: Yes (Hospitalization)
  Sender: FDA-Public Use
  Company Number: IT-ACCORD-048249

PATIENT
  Age: 79 Year

DRUGS (6)
  1. LANSOPRAZOLE. [Concomitant]
     Active Substance: LANSOPRAZOLE
     Route: 048
  2. CREON [Concomitant]
     Active Substance: PANCRELIPASE AMYLASE\PANCRELIPASE LIPASE\PANCRELIPASE PROTEASE
  3. CALCIO LEVOFOLINATO TEVA [Concomitant]
     Active Substance: LEUCOVORIN CALCIUM
     Route: 042
  4. ONIVYDE [Suspect]
     Active Substance: IRINOTECAN HYDROCHLORIDE
     Indication: ADENOCARCINOMA PANCREAS
     Dates: start: 20160923
  5. FLUOROURACILE ACCORD [Concomitant]
     Active Substance: FLUOROURACIL
     Route: 042
  6. ONDANSETRON ACCORD [Concomitant]
     Active Substance: ONDANSETRON

REACTIONS (3)
  - Bradycardia [Unknown]
  - Hypokalaemia [Unknown]
  - Diarrhoea [Unknown]

NARRATIVE: CASE EVENT DATE: 20170119
